FAERS Safety Report 6777992-9 (Version None)
Quarter: 2010Q2

REPORT INFORMATION
  Report Type: 
  Country: None (occurrence: None)
  Receive Date: 20100618
  Receipt Date: 20100608
  Transmission Date: 20101027
  Serious: No
  Sender: FDA-Public Use
  Company Number: US-BIOGENIDEC-2010BI019445

PATIENT
  Sex: Male

DRUGS (1)
  1. TYSABRI [Suspect]
     Indication: MULTIPLE SCLEROSIS
     Route: 042
     Dates: start: 20061201

REACTIONS (7)
  - BACK PAIN [None]
  - BALANCE DISORDER [None]
  - BONE PAIN [None]
  - MUSCULOSKELETAL DISORDER [None]
  - PAIN IN EXTREMITY [None]
  - PHOTOPSIA [None]
  - PRODUCTIVE COUGH [None]
